FAERS Safety Report 4798260-0 (Version None)
Quarter: 2005Q4

REPORT INFORMATION
  Report Type: 
  Country: None (occurrence: None)
  Receive Date: 20051014
  Receipt Date: 20051005
  Transmission Date: 20060501
  Serious: Yes (Other)
  Sender: FDA-Public Use
  Company Number: US-JNJFOC-20050901681

PATIENT
  Sex: Female
  Weight: 75.3 kg

DRUGS (19)
  1. REMICADE [Suspect]
     Route: 042
  2. REMICADE [Suspect]
     Route: 042
  3. REMICADE [Suspect]
     Route: 042
  4. ARAVA [Concomitant]
     Indication: RHEUMATOID ARTHRITIS
     Dosage: 20 MG
  5. SULFASALAZINE [Concomitant]
     Indication: RHEUMATOID ARTHRITIS
     Dosage: 500 MG B.I.D.
  6. PLAQUENIL [Concomitant]
     Indication: RHEUMATOID ARTHRITIS
     Dosage: 400 B.I.D
  7. DARVOCET [Concomitant]
  8. DARVOCET [Concomitant]
  9. FOLIC ACID [Concomitant]
     Indication: RHEUMATOID ARTHRITIS
     Dosage: 1 MG
  10. GLUCOTROL [Concomitant]
  11. GLUCOPHAGE [Concomitant]
  12. INSULIN [Concomitant]
  13. ATENOLOL [Concomitant]
  14. DIOVAN [Concomitant]
  15. HYDROCHLOROTHIAZIDE [Concomitant]
  16. TRICOR [Concomitant]
  17. PERCOCET [Concomitant]
  18. PERCOCET [Concomitant]
  19. TYLENOL (CAPLET) [Concomitant]

REACTIONS (2)
  - BREAST CANCER STAGE III [None]
  - RENAL FAILURE [None]
